FAERS Safety Report 8500821-X (Version None)
Quarter: 2012Q3

REPORT INFORMATION
  Report Type: 
  Country: None (occurrence: None)
  Receive Date: 20120710
  Receipt Date: 20120702
  Transmission Date: 20120928
  Serious: Yes (Hospitalization, Other)
  Sender: FDA-Public Use
  Company Number: DE-B.I. PHARMACEUTICALS,INC./RIDGEFIELD-2012-DE-01280DE

PATIENT
  Age: 73 Year
  Sex: Female

DRUGS (10)
  1. ASPIRIN [Concomitant]
     Dosage: 100
  2. PREDNISOLON ACIS [Concomitant]
     Dosage: 10 MG
  3. FURO-CT [Concomitant]
     Dosage: 120 MG
  4. PANTOPRAZOL HEUMANN [Concomitant]
     Dosage: 120 MG
  5. ASPIRIN [Concomitant]
  6. CITALOPRAM AL [Concomitant]
     Dosage: 20 MG
  7. GABAPENTIN RATIO [Concomitant]
     Dosage: 1200 MG
  8. PROPAFENON SANDOZ [Concomitant]
     Dosage: 300 MG
  9. PRADAXA [Suspect]
     Dosage: 300 MG
  10. VERAMEX RETARD [Concomitant]
     Dosage: 240

REACTIONS (3)
  - RENAL FUNCTION TEST ABNORMAL [None]
  - NEOPLASM [None]
  - BLOOD URINE PRESENT [None]
